FAERS Safety Report 4571807-5 (Version None)
Quarter: 2005Q1

REPORT INFORMATION
  Report Type: 
  Country: None (occurrence: None)
  Receive Date: 20050207
  Receipt Date: 20050127
  Transmission Date: 20050727
  Serious: Yes (Hospitalization)
  Sender: FDA-Public Use
  Company Number: US-JNJFOC-20050200207

PATIENT
  Age: 67 Year
  Sex: Male

DRUGS (14)
  1. TYLENOL [Suspect]
     Route: 049
  2. TYLENOL [Suspect]
     Indication: HEAD INJURY
     Route: 049
  3. GOODY'S POWDER [Suspect]
     Route: 049
  4. GOODY'S POWDER [Suspect]
     Route: 049
  5. GOODY'S POWDER [Suspect]
     Indication: HEAD INJURY
     Route: 049
  6. BC HEADACHE POWDER [Suspect]
     Route: 049
  7. BC HEADACHE POWDER [Suspect]
     Route: 049
  8. BC HEADACHE POWDER [Suspect]
     Indication: HEADACHE
     Dosage: Q 4 HOURS FOR SEVERAL YEARS, ORAL
     Route: 049
  9. PERCOCET [Suspect]
  10. PERCOCET [Suspect]
     Indication: HEAD INJURY
     Dosage: AS MANY AS 8-10 DAILY
  11. ASPIRIN [Suspect]
     Indication: DRUG USE FOR UNKNOWN INDICATION
  12. IBUPROFEN [Suspect]
     Indication: DRUG USE FOR UNKNOWN INDICATION
     Dosage: SEMI-REGULAR BASIS
  13. ZOLPIDEM TARTRATE [Concomitant]
  14. AMBIEN [Concomitant]

REACTIONS (34)
  - ABDOMINAL PAIN LOWER [None]
  - ASTHENIA [None]
  - BLEEDING TIME ABNORMAL [None]
  - BLOOD GLUCOSE INCREASED [None]
  - BRADYCARDIA [None]
  - CARDIAC FAILURE CONGESTIVE [None]
  - COUGH [None]
  - DIALYSIS [None]
  - DIARRHOEA [None]
  - DILATATION VENTRICULAR [None]
  - DIZZINESS [None]
  - DYSPNOEA [None]
  - EJECTION FRACTION DECREASED [None]
  - EROSIVE OESOPHAGITIS [None]
  - GASTRITIS HAEMORRHAGIC [None]
  - GASTROINTESTINAL EROSION [None]
  - HYPERTENSION [None]
  - IRON DEFICIENCY [None]
  - MEDICATION ERROR [None]
  - MYALGIA [None]
  - NEPHROGENIC ANAEMIA [None]
  - NEPHROTIC SYNDROME [None]
  - OEDEMA PERIPHERAL [None]
  - OESOPHAGEAL ULCER [None]
  - PALPITATIONS [None]
  - PULMONARY OEDEMA [None]
  - PYREXIA [None]
  - RALES [None]
  - RENAL FAILURE [None]
  - RENAL FAILURE ACUTE [None]
  - RHABDOMYOLYSIS [None]
  - SPUTUM PURULENT [None]
  - VENTRICULAR HYPERTROPHY [None]
  - VIRAL INFECTION [None]
